FAERS Safety Report 8643899 (Version 9)
Quarter: 2013Q1

REPORT INFORMATION
  Report Type: Report from Study
  Country: US (occurrence: US)
  Receive Date: 20120629
  Receipt Date: 20130220
  Transmission Date: 20140127
  Serious: Yes (Other)
  Sender: FDA-Public Use
  Company Number: US-ROCHE-1015986

PATIENT
  Age: 45 Year
  Sex: Male
  Weight: 90.35 kg

DRUGS (28)
  1. PEGASYS [Suspect]
     Indication: CHRONIC HEPATITIS C
     Route: 058
     Dates: start: 20110803, end: 20120701
  2. PEGASYS [Suspect]
     Indication: HIV INFECTION
     Route: 058
     Dates: start: 20111102
  3. PEGASYS [Suspect]
     Route: 058
     Dates: start: 201204
  4. PEGASYS [Suspect]
     Route: 058
     Dates: start: 20110803, end: 20120601
  5. PEGASYS [Suspect]
     Route: 058
     Dates: start: 20110308, end: 20120106
  6. PEGASYS [Suspect]
     Route: 058
     Dates: start: 20110803, end: 20120701
  7. PEGASYS [Suspect]
     Route: 058
     Dates: start: 20120124, end: 20120531
  8. PEGASYS [Suspect]
     Route: 058
     Dates: end: 20120701
  9. TRAZODONE [Suspect]
     Indication: PRODUCT USED FOR UNKNOWN INDICATION
     Route: 065
  10. TRAZODONE [Suspect]
     Route: 065
  11. RIBAVIRIN [Suspect]
     Indication: CHRONIC HEPATITIS C
     Dosage: IN DIVIDED DOSES
     Route: 048
     Dates: start: 20110803, end: 20120701
  12. RIBAVIRIN [Suspect]
     Route: 048
     Dates: start: 20111102
  13. RIBAVIRIN [Suspect]
     Route: 048
     Dates: start: 20110803, end: 20120601
  14. RIBAVIRIN [Suspect]
     Route: 048
     Dates: start: 20120124, end: 20120531
  15. RIBAVIRIN [Suspect]
     Dosage: DIVIDED DOSE
     Route: 048
     Dates: end: 20120701
  16. TRUVADA [Concomitant]
     Indication: HIV INFECTION
     Route: 048
     Dates: start: 20080421
  17. REYATAZ [Concomitant]
     Indication: HIV INFECTION
     Route: 048
     Dates: start: 20080421
  18. FENOFIBRATE [Concomitant]
     Route: 048
  19. ZOFRAN [Concomitant]
     Dosage: N/V
     Route: 048
  20. LIPITOR [Concomitant]
     Dosage: WITH FOOD
     Route: 048
  21. GABAPENTIN [Concomitant]
     Dosage: 1 TAB AM AND 2 TAB PM
     Route: 048
  22. LOMOTIL [Concomitant]
     Indication: DIARRHOEA
     Dosage: 2.5-.025 MG
     Route: 048
  23. LEXAPRO [Concomitant]
     Dosage: 2 GM AT MORNING
     Route: 065
  24. TRAZODONE [Concomitant]
     Dosage: 2GRAM AT NIGHT
     Route: 065
  25. HYDROXYZINE [Concomitant]
     Indication: PRURITUS
     Route: 065
  26. REYATAZ [Concomitant]
     Route: 048
  27. NORVIR [Concomitant]
     Route: 048
  28. RHINOCORT AQUA [Concomitant]
     Route: 045

REACTIONS (23)
  - Thrombocytopenia [Recovered/Resolved]
  - Neutropenia [Recovered/Resolved]
  - Basal cell carcinoma [Unknown]
  - Neutrophil count decreased [Unknown]
  - Respiratory tract infection [Unknown]
  - Pruritus [Recovered/Resolved]
  - Eczema [Unknown]
  - Skin ulcer [Unknown]
  - Decreased appetite [Unknown]
  - Hypotonia [Unknown]
  - Skeletal injury [Unknown]
  - Head injury [Unknown]
  - Rash generalised [Unknown]
  - Fall [Unknown]
  - Fatigue [Unknown]
  - Skin disorder [Unknown]
  - Blood disorder [Unknown]
  - Haemorrhoids [Unknown]
  - Rectal haemorrhage [Unknown]
  - Platelet count decreased [Unknown]
  - Dry skin [Unknown]
  - Skin fissures [Unknown]
  - Rash [Recovered/Resolved]
